FAERS Safety Report 8426398-5 (Version None)
Quarter: 2012Q2

REPORT INFORMATION
  Report Type: 
  Country: None (occurrence: None)
  Receive Date: 20120611
  Receipt Date: 20120528
  Transmission Date: 20120825
  Serious: Yes (Hospitalization, Other)
  Sender: FDA-Public Use
  Company Number: JP-UCBSA-057398

PATIENT
  Age: 69 Year
  Sex: Female

DRUGS (17)
  1. PREDNISOLONE [Concomitant]
     Indication: RHEUMATOID ARTHRITIS
     Dosage: DAILY DOSE: 4 MG
     Route: 048
     Dates: start: 20090813
  2. HALCION [Concomitant]
     Indication: INSOMNIA
     Dosage: DAILY DOSE: 0.25 MG
     Route: 048
     Dates: start: 20090813
  3. MYONAL [Concomitant]
     Indication: ANXIETY
     Dosage: DAILY DOSE: 50 MG
     Route: 048
     Dates: start: 20111207
  4. POSTERISAN [Concomitant]
     Indication: ANAL FISSURE
     Dosage: DAILY DOSE: 2 G
     Route: 061
     Dates: start: 20101228
  5. CIMZIA [Suspect]
     Route: 058
     Dates: start: 20100813, end: 20120419
  6. TRAVELMIN [Concomitant]
     Indication: ANXIETY
     Dosage: DAILY DOSE: 2 DF
     Route: 048
     Dates: start: 20111116
  7. FERROUS CITRATE [Concomitant]
     Indication: ANAEMIA PROPHYLAXIS
     Dosage: DAILY DOSE: 50 MG
     Route: 048
     Dates: start: 20120126
  8. ACTONEL [Concomitant]
     Indication: OSTEOPOROSIS PROPHYLAXIS
     Route: 048
     Dates: start: 20090813
  9. VOLTAREN [Concomitant]
     Indication: RHEUMATOID ARTHRITIS
     Dosage: DAILY DOSE: 50 MG
     Route: 054
     Dates: start: 20100209
  10. ASPIRIN [Concomitant]
     Indication: CEREBRAL INFARCTION
     Dosage: DAILY DOSE: 100 MG
     Route: 048
     Dates: start: 20120421
  11. CELEBREX [Concomitant]
     Indication: RHEUMATOID ARTHRITIS
     Dosage: DAILY DOSE: 200 MG
     Route: 048
     Dates: start: 20091106
  12. MEILAX [Concomitant]
     Indication: ANXIETY
     Dosage: DAILY DOSE: 1 MG
     Route: 048
     Dates: start: 20100520
  13. CIMZIA [Suspect]
     Indication: RHEUMATOID ARTHRITIS
     Route: 058
     Dates: start: 20090813, end: 20100729
  14. FAMOTIDINE [Concomitant]
     Indication: GASTRITIS PROPHYLAXIS
     Dosage: DAILY DOSE: 40 MG
     Route: 048
     Dates: start: 20090813
  15. KETOPROFEN [Concomitant]
     Indication: RHEUMATOID ARTHRITIS
     Dosage: AS NEEDED
     Route: 062
     Dates: start: 20101104
  16. LIVALO [Concomitant]
     Indication: HYPERCHOLESTEROLAEMIA
     Dosage: DAILY DOSE: 1 MG
     Route: 048
     Dates: start: 20101007
  17. DEPAS [Concomitant]
     Indication: ANXIETY
     Dosage: DAILY DOSE: 0.5 MG
     Route: 048
     Dates: start: 20111207

REACTIONS (2)
  - GASTRIC CANCER [None]
  - ARTHRITIS BACTERIAL [None]
